FAERS Safety Report 5177077-1 (Version None)
Quarter: 2006Q4

REPORT INFORMATION
  Report Type: 
  Country: None (occurrence: None)
  Receive Date: 20061218
  Receipt Date: 20061211
  Transmission Date: 20070319
  Serious: Yes (Hospitalization)
  Sender: FDA-Public Use
  Company Number: BR-SHR-BR-2006-039160

PATIENT
  Age: 33 Year
  Sex: Female

DRUGS (1)
  1. MIRENA [Suspect]
     Indication: ENDOMETRIOSIS
     Dosage: 20 A?G/DAY, CONT
     Route: 015
     Dates: start: 20051230, end: 20060601

REACTIONS (14)
  - ABDOMINAL PAIN [None]
  - ALOPECIA [None]
  - BREAST ENLARGEMENT [None]
  - CONSTIPATION [None]
  - CYSTITIS [None]
  - FLUID RETENTION [None]
  - IRRITABILITY [None]
  - IRRITABLE BOWEL SYNDROME [None]
  - NAUSEA [None]
  - NEPHRITIS [None]
  - OEDEMA PERIPHERAL [None]
  - PAIN IN EXTREMITY [None]
  - VERTIGO [None]
  - VOMITING [None]
